FAERS Safety Report 13273394 (Version 2)
Quarter: 2017Q1

REPORT INFORMATION
  Report Type: Report from Study
  Country: DE (occurrence: DE)
  Receive Date: 20170227
  Receipt Date: 20170307
  Transmission Date: 20170428
  Serious: Yes (Hospitalization)
  Sender: FDA-Public Use
  Company Number: PHHY2017DE029799

PATIENT
  Sex: Female
  Weight: 67 kg

DRUGS (12)
  1. LEVETIRACETAM. [Concomitant]
     Active Substance: LEVETIRACETAM
     Indication: MULTIPLE SCLEROSIS
     Dosage: 2 DF, QD (2X1)
     Route: 048
     Dates: start: 20150701, end: 20160330
  2. LEVETIRACETAM. [Concomitant]
     Active Substance: LEVETIRACETAM
     Indication: SENSITISATION
     Dosage: 4 DF, QD (4X1)
     Route: 048
     Dates: start: 20160331
  3. BIOTIN [Concomitant]
     Active Substance: BIOTIN
     Indication: MULTIPLE SCLEROSIS
     Dosage: 3 MG, QD
     Route: 048
     Dates: start: 20150608, end: 20150808
  4. GILENYA [Suspect]
     Active Substance: FINGOLIMOD HYDROCHLORIDE
     Indication: MULTIPLE SCLEROSIS
     Dosage: 0.5 MG, QD
     Route: 048
     Dates: start: 20131212
  5. FAMPYRA [Concomitant]
     Active Substance: DALFAMPRIDINE
     Indication: MULTIPLE SCLEROSIS
     Dosage: 2 DF, QD
     Route: 048
     Dates: start: 20130416
  6. PREGABALIN. [Concomitant]
     Active Substance: PREGABALIN
     Indication: MULTIPLE SCLEROSIS
     Dosage: 2 DF, QD
     Route: 048
     Dates: start: 20150608, end: 20150722
  7. TOLPERISONE [Concomitant]
     Active Substance: TOLPERISONE
     Dosage: 150 MG, BID
     Route: 048
     Dates: start: 20130416, end: 20150430
  8. BACLOFEN. [Concomitant]
     Active Substance: BACLOFEN
     Indication: MUSCLE SPASTICITY
     Dosage: 12.5 MG, QD
     Route: 048
     Dates: start: 20150312
  9. PREGABALIN. [Concomitant]
     Active Substance: PREGABALIN
     Indication: SENSITISATION
  10. TOLPERISONE [Concomitant]
     Active Substance: TOLPERISONE
     Indication: MUSCLE SPASTICITY
     Dosage: 50 MG, BID
     Route: 048
     Dates: start: 20120401
  11. FAMPYRA [Concomitant]
     Active Substance: DALFAMPRIDINE
     Indication: GAIT DISTURBANCE
     Dosage: 2 DF, QD
     Route: 048
     Dates: start: 20121101
  12. VIGIL [Concomitant]
     Active Substance: MODAFINIL
     Indication: FATIGUE
     Dosage: 100 MG, QD
     Route: 048
     Dates: start: 20160426, end: 20160430

REACTIONS (1)
  - Thyroid cancer [Recovered/Resolved]
